FAERS Safety Report 19486248 (Version 1)
Quarter: 2021Q3

REPORT INFORMATION
  Report Type: Spontaneous
  Country: US (occurrence: US)
  Receive Date: 20210701
  Receipt Date: 20210701
  Transmission Date: 20211014
  Serious: Yes (Hospitalization)
  Sender: FDA-Public Use
  Company Number: None

PATIENT
  Age: 37 Year
  Sex: Female

DRUGS (23)
  1. HUMIRA [Suspect]
     Active Substance: ADALIMUMAB
     Indication: HIDRADENITIS
     Dosage: ?          OTHER DOSE:2 PENS;?
     Route: 058
     Dates: start: 20210407
  2. NAPROXEN. [Concomitant]
     Active Substance: NAPROXEN
  3. DESONIDE. [Concomitant]
     Active Substance: DESONIDE
  4. LEXAPRO [Concomitant]
     Active Substance: ESCITALOPRAM OXALATE
  5. OMEPRAZOLE. [Concomitant]
     Active Substance: OMEPRAZOLE
  6. TESTOSTERONE CYPIONAT [Concomitant]
  7. TRETINOIN CRE [Concomitant]
  8. DOXYCYCL HYC [Concomitant]
     Active Substance: DOXYCYCLINE HYCLATE
  9. BACTRIM DS [Concomitant]
     Active Substance: SULFAMETHOXAZOLE\TRIMETHOPRIM
  10. VITAMIN D [Concomitant]
     Active Substance: VITAMIN D NOS
  11. VOLTAREN [Concomitant]
     Active Substance: DICLOFENAC SODIUM
  12. CALCIUM [Concomitant]
     Active Substance: CALCIUM
  13. VITAMIN B50 [Concomitant]
  14. IPRATROPIUM/SOL ALBUTER [Concomitant]
  15. PROAIR RESPI [Concomitant]
  16. SINGULAIR CHW [Concomitant]
  17. CLINDAMYCIN OIN [Concomitant]
  18. FERROUS FUM [Concomitant]
  19. LIDODERM [Concomitant]
     Active Substance: LIDOCAINE
  20. MINOCYCLINE [Concomitant]
     Active Substance: MINOCYCLINE HYDROCHLORIDE
  21. DULERA [Concomitant]
     Active Substance: FORMOTEROL FUMARATE DIHYDRATE\MOMETASONE FUROATE
  22. MIRENA [Concomitant]
     Active Substance: LEVONORGESTREL
  23. VALTREX [Concomitant]
     Active Substance: VALACYCLOVIR HYDROCHLORIDE

REACTIONS (1)
  - Gastric bypass [None]

NARRATIVE: CASE EVENT DATE: 20210518
